FAERS Safety Report 4754147-0 (Version None)
Quarter: 2005Q3

REPORT INFORMATION
  Report Type: 
  Country: None (occurrence: None)
  Receive Date: 20050826
  Receipt Date: 20040521
  Transmission Date: 20060218
  Serious: Yes (Hospitalization)
  Sender: FDA-Public Use
  Company Number: JP-ABBOTT-05P-087-0306432-00

PATIENT
  Age: 68 Year
  Sex: Female
  Weight: 42 kg

DRUGS (6)
  1. ERYTHROCIN [Suspect]
     Indication: INFECTION
     Route: 048
     Dates: start: 20040505, end: 20040507
  2. GABEXATE MESILATE [Concomitant]
     Indication: DISSEMINATED INTRAVASCULAR COAGULATION
     Route: 042
     Dates: start: 20040421, end: 20040507
  3. SUGAR/ELECTROLYTE/AMINO ACID/PREPARATIONS [Concomitant]
     Indication: MALNUTRITION
     Route: 042
     Dates: start: 20040429, end: 20040507
  4. MINOCYCLINE HYDROCHLORIDE [Concomitant]
     Indication: INFECTION
     Route: 042
     Dates: start: 20040421, end: 20040504
  5. FOSFOMYCIN [Concomitant]
     Indication: INFECTION
     Route: 042
     Dates: start: 20040421, end: 20040504
  6. LANSOPRAZOLE [Concomitant]
     Indication: GASTROINTESTINAL DISORDER
     Route: 048
     Dates: start: 20040429

REACTIONS (1)
  - RHABDOMYOLYSIS [None]
